FAERS Safety Report 4697775-3 (Version None)
Quarter: 2005Q2

REPORT INFORMATION
  Report Type: 
  Country: None (occurrence: None)
  Receive Date: 20050621
  Receipt Date: 20050614
  Transmission Date: 20051028
  Serious: Yes (Life-Threatening)
  Sender: FDA-Public Use
  Company Number: 2005-129448-NL

PATIENT
  Age: 57 Year
  Sex: Female

DRUGS (4)
  1. VECURONIUM BROMIDE [Suspect]
     Indication: INDUCTION OF ANAESTHESIA
     Dosage: 10 MG INTRAVENOUS (NOS)
     Route: 042
  2. MIDAZOLAM HCL [Suspect]
     Indication: INDUCTION OF ANAESTHESIA
     Dosage: 2 MG INTRAVENOUS (NOS)
     Route: 042
  3. ETOMIDATE [Suspect]
     Indication: INDUCTION OF ANAESTHESIA
     Dosage: 16 MG INTRAVENOUS (NOS)
     Route: 042
  4. FENTANYL [Suspect]
     Indication: INDUCTION OF ANAESTHESIA
     Dosage: 250 UG INTRAVESICAL
     Route: 043

REACTIONS (10)
  - ANAESTHETIC COMPLICATION [None]
  - BLOOD BILIRUBIN INCREASED [None]
  - BLOOD PRESSURE DECREASED [None]
  - CYANOSIS [None]
  - HEART RATE INCREASED [None]
  - MYOCARDIAL INFARCTION [None]
  - MYOCARDIAL RUPTURE [None]
  - PERICARDIAL DISEASE [None]
  - VASCULAR BYPASS GRAFT [None]
  - VENTRICULAR TACHYCARDIA [None]
